FAERS Safety Report 5447563-5 (Version None)
Quarter: 2007Q3

REPORT INFORMATION
  Report Type: 
  Country: None (occurrence: None)
  Receive Date: 20070905
  Receipt Date: 20070905
  Transmission Date: 20080115
  Serious: Yes (Hospitalization)
  Sender: FDA-Public Use
  Company Number: None

PATIENT
  Age: 25 Year
  Sex: Female
  Weight: 77.1115 kg

DRUGS (1)
  1. FEMCON FE [Suspect]
     Dosage: 1 PILL EVERYDAY PO
     Route: 048
     Dates: start: 20070310, end: 20070615

REACTIONS (2)
  - MIGRAINE [None]
  - PULMONARY EMBOLISM [None]
